FAERS Safety Report 6945163-9 (Version None)
Quarter: 2010Q3

REPORT INFORMATION
  Report Type: 
  Country: None (occurrence: None)
  Receive Date: 20100827
  Receipt Date: 20100819
  Transmission Date: 20110219
  Serious: Yes (Death, Hospitalization, Other)
  Sender: FDA-Public Use
  Company Number: US-AMGEN-QUU406654

PATIENT
  Sex: Female
  Weight: 61.7 kg

DRUGS (6)
  1. NPLATE [Suspect]
     Indication: IDIOPATHIC THROMBOCYTOPENIC PURPURA
     Route: 058
     Dates: start: 20090122, end: 20090612
  2. GLUCOTROL [Concomitant]
  3. CALTRATE 600 [Concomitant]
  4. ASCORBIC ACID [Concomitant]
  5. MULTIVITAMIN [Concomitant]
  6. TYLENOL PM [Concomitant]

REACTIONS (12)
  - ARACHNOID CYST [None]
  - CARDIAC ARREST [None]
  - COAGULOPATHY [None]
  - HEPATIC CIRRHOSIS [None]
  - HYPOTENSION [None]
  - LEUKOCYTOSIS [None]
  - LUNG NEOPLASM MALIGNANT [None]
  - NEPHRECTOMY [None]
  - POST PROCEDURAL HAEMORRHAGE [None]
  - RENAL CELL CARCINOMA [None]
  - RENAL FAILURE [None]
  - THROMBOCYTOPENIA [None]
